FAERS Safety Report 8345045-4 (Version None)
Quarter: 2012Q2

REPORT INFORMATION
  Report Type: 
  Country: None (occurrence: None)
  Receive Date: 20120508
  Receipt Date: 20120426
  Transmission Date: 20120825
  Serious: Yes (Death, Hospitalization)
  Sender: FDA-Public Use
  Company Number: JP-ACTELION-A-JP2008-21596

PATIENT
  Sex: Male
  Weight: 56 kg

DRUGS (21)
  1. TULOBUTEROL [Concomitant]
  2. PREDNISOLONE [Concomitant]
  3. SULFAMETHOXAZOLE AND TRIMETHOPRIM [Concomitant]
  4. ALENDRONATE SODIUM [Concomitant]
  5. OXYGEN [Concomitant]
  6. MONTELUKAST SODIUM [Concomitant]
  7. TRACLEER [Suspect]
     Dosage: 62.5 MG, OD
     Route: 048
     Dates: start: 20070625, end: 20070726
  8. AMBROXOL [Concomitant]
  9. ISONIAZID [Concomitant]
  10. BAKUMONDOTO [Concomitant]
  11. SOLIFENACIN SUCCINATE [Concomitant]
  12. CODEINE [Concomitant]
  13. DEXTROMETHORPHAN HYDROBROMIDE [Concomitant]
  14. OMEPRAZOLE [Concomitant]
  15. NAFTOPIDIL [Concomitant]
  16. PYRIDOXAL PHOSPHATE [Concomitant]
  17. CLARITHROMYCIN [Concomitant]
  18. MORPHINE HYDROCHLORIDE [Concomitant]
  19. TRACLEER [Suspect]
     Indication: PULMONARY ARTERIAL HYPERTENSION
     Dosage: 62.5 MG, BID
     Route: 048
     Dates: start: 20070727, end: 20081208
  20. AZATHIOPRINE [Concomitant]
  21. MAGNESIUM OXIDE [Concomitant]

REACTIONS (22)
  - WHITE BLOOD CELL COUNT DECREASED [None]
  - ANAEMIA [None]
  - GASTROINTESTINAL TUBE INSERTION [None]
  - HAEMOGLOBIN DECREASED [None]
  - OXYGEN SATURATION DECREASED [None]
  - MENTAL STATUS CHANGES [None]
  - HYPERCAPNIA [None]
  - COUGH [None]
  - RESPIRATORY DEPRESSION [None]
  - PULMONARY ARTERY WALL HYPERTROPHY [None]
  - THORACIC CAVITY DRAINAGE [None]
  - RED BLOOD CELL COUNT DECREASED [None]
  - PNEUMONIA BACTERIAL [None]
  - PNEUMOTHORAX [None]
  - BULLOUS LUNG DISEASE [None]
  - TRANSFUSION [None]
  - ENTERAL NUTRITION [None]
  - HYPOVENTILATION [None]
  - RESPIRATORY FAILURE [None]
  - INTERSTITIAL LUNG DISEASE [None]
  - PLATELET COUNT DECREASED [None]
  - NOCARDIOSIS [None]
